FAERS Safety Report 5422285-5 (Version None)
Quarter: 2007Q3

REPORT INFORMATION
  Report Type: 
  Country: None (occurrence: None)
  Receive Date: 20070820
  Receipt Date: 20070820
  Transmission Date: 20080115
  Serious: Yes (Other)
  Sender: FDA-Public Use
  Company Number: None

PATIENT
  Age: 46 Year
  Sex: Male
  Weight: 77.1115 kg

DRUGS (1)
  1. MIRAPEX [Suspect]
     Indication: RESTLESS LEGS SYNDROME
     Dosage: 2 AT BEDTIME PO
     Route: 048
     Dates: start: 20060801, end: 20070801

REACTIONS (7)
  - ABNORMAL SLEEP-RELATED EVENT [None]
  - ECONOMIC PROBLEM [None]
  - HYPERPHAGIA [None]
  - PATHOLOGICAL GAMBLING [None]
  - RESTLESSNESS [None]
  - SCREAMING [None]
  - SOMNAMBULISM [None]
